FAERS Safety Report 6915264-X (Version None)
Quarter: 2010Q3

REPORT INFORMATION
  Report Type: 
  Country: None (occurrence: None)
  Receive Date: 20100809
  Receipt Date: 20090918
  Transmission Date: 20110219
  Serious: No
  Sender: FDA-Public Use
  Company Number: US-ABBOTT-09P-163-0594272-00

PATIENT
  Weight: 75.364 kg

DRUGS (2)
  1. DEPAKOTE ER [Suspect]
     Indication: OBSESSIVE-COMPULSIVE DISORDER
     Dates: start: 20060101
  2. ABILIFY [Suspect]
     Indication: OBSESSIVE-COMPULSIVE DISORDER

REACTIONS (3)
  - HEAD TITUBATION [None]
  - HYPERSENSITIVITY [None]
  - TREMOR [None]
